FAERS Safety Report 5385375-1 (Version None)
Quarter: 2007Q3

REPORT INFORMATION
  Report Type: 
  Country: None (occurrence: None)
  Receive Date: 20070712
  Receipt Date: 20070702
  Transmission Date: 20080115
  Serious: Yes (Death, Hospitalization)
  Sender: FDA-Public Use
  Company Number: NZ-ROCHE-493582

PATIENT
  Age: 66 Year
  Sex: Male
  Weight: 64.7 kg

DRUGS (27)
  1. CAPECITABINE [Suspect]
     Indication: COLORECTAL CANCER
     Dosage: GIVEN FOR SEVEN DAYS EVERY TWO WEEKS.
     Route: 048
  2. CAPECITABINE [Suspect]
     Dosage: GIVEN FOR SEVEN DAYS EVERY TWO WEEKS.
     Route: 048
     Dates: start: 20070403
  3. BEVACIZUMAB [Suspect]
     Indication: COLORECTAL CANCER
     Dosage: DOSAGE FORM: SOLUTION FO INFUSION.
     Route: 042
     Dates: start: 20070403, end: 20070616
  4. OXALIPLATIN [Suspect]
     Indication: COLORECTAL CANCER
     Dosage: DOAGE FORM: SOLUTION FOR INFUSION.
     Route: 042
     Dates: start: 20070403
  5. ASPIRIN [Concomitant]
     Route: 048
     Dates: start: 20011124
  6. ACCUPRIL [Concomitant]
     Route: 048
     Dates: start: 20060418, end: 20070503
  7. NYSTATIN [Concomitant]
     Route: 048
     Dates: start: 20070503
  8. DIFFLAM [Concomitant]
     Route: 048
     Dates: start: 20070503
  9. AQUEOUS CREAM [Concomitant]
     Dates: start: 20070505
  10. MORPHINE [Concomitant]
     Dosage: GIVEN SUBCUTANEOUS AND INTRAVENOUS.
     Route: 050
     Dates: start: 20070609
  11. TRAMADOL HCL [Concomitant]
     Dosage: GIVEN ORAL AND INTRAVENOUS.
     Route: 050
     Dates: start: 20070612, end: 20070615
  12. METRONIDAZOLE [Concomitant]
     Route: 042
     Dates: start: 20070612, end: 20070615
  13. CEFUROXIME [Concomitant]
     Route: 042
     Dates: start: 20070612, end: 20070615
  14. LOPERAMIDE HCL [Concomitant]
     Route: 048
     Dates: start: 20070529, end: 20070608
  15. HALOPERIDOL [Concomitant]
     Dates: start: 20070529, end: 20070604
  16. CYCLIZINE [Concomitant]
     Dosage: GIVEN INTRAVENOUS AND SUBCUTANEOUS.
     Route: 050
     Dates: start: 20070529, end: 20070604
  17. NOZINAN [Concomitant]
     Route: 048
     Dates: start: 20070530, end: 20070602
  18. BUSCOPAN [Concomitant]
     Dosage: GIVEN ORAL, INTAVENOUS AND SUBCOUTANEOUS.
     Route: 050
     Dates: start: 20070601
  19. METOCLOPRAMIDE [Concomitant]
     Route: 042
     Dates: start: 20070530, end: 20070603
  20. DEXAMETHASONE 0.5MG TAB [Concomitant]
     Dosage: GIVEN ORAL AND INTRAVENOUS.
     Route: 050
     Dates: start: 20070609, end: 20070615
  21. CLEXANE [Concomitant]
     Route: 058
     Dates: start: 20070611, end: 20070611
  22. PARACETAMOL [Concomitant]
     Route: 048
     Dates: start: 20070609
  23. ROXITHROMYCIN [Concomitant]
     Dates: start: 20070611, end: 20070611
  24. SODIUM CHLORIDE [Concomitant]
     Dosage: DRUG REPORTED AS NORMAL SALINE WITH 20 MLS KCL.
     Dates: start: 20070608, end: 20070610
  25. HEPARINISED SALINE [Concomitant]
     Dosage: DRUG REPORTED AS HEP SALINE.
     Dates: start: 20070614, end: 20070614
  26. DEXTROSE [Concomitant]
     Dosage: DRUG REPORTED AS 5 PER CENT DEXTROSE.
     Dates: start: 20070612
  27. OMEPRAZOLE [Concomitant]
     Dates: end: 20070615

REACTIONS (5)
  - GASTROINTESTINAL PAIN [None]
  - LARGE INTESTINE PERFORATION [None]
  - SEPSIS [None]
  - SMALL INTESTINAL OBSTRUCTION [None]
  - VOMITING [None]
